FAERS Safety Report 22658148 (Version 7)
Quarter: 2024Q2

REPORT INFORMATION
  Report Type: Report from Study
  Country: US (occurrence: US)
  Receive Date: 20230630
  Receipt Date: 20240522
  Transmission Date: 20240716
  Serious: Yes (Other)
  Sender: FDA-Public Use
  Company Number: US-002147023-NVSC2023US148552

PATIENT
  Age: 40 Year
  Sex: Male

DRUGS (3)
  1. VIJOICE [Suspect]
     Active Substance: ALPELISIB
     Indication: PIK3CA related overgrowth spectrum
     Dosage: 125 MG, QD
     Route: 048
     Dates: start: 202304, end: 20230807
  2. VIJOICE [Suspect]
     Active Substance: ALPELISIB
     Dosage: 125 MG/KG, QD
     Route: 048
  3. VIJOICE [Suspect]
     Active Substance: ALPELISIB
     Dosage: 175 MG, QD
     Route: 048
     Dates: start: 202310

REACTIONS (2)
  - Haemorrhage [Unknown]
  - Product availability issue [Unknown]

NARRATIVE: CASE EVENT DATE: 20230401
